FAERS Safety Report 20892478 (Version 2)
Quarter: 2023Q1

REPORT INFORMATION
  Report Type: Report from Study
  Country: US (occurrence: US)
  Receive Date: 20220531
  Receipt Date: 20230208
  Transmission Date: 20230418
  Serious: Yes (Other)
  Sender: FDA-Public Use
  Company Number: US-ABBVIE-22K-163-4347210-00

PATIENT
  Sex: Female

DRUGS (2)
  1. HUMIRA [Suspect]
     Active Substance: ADALIMUMAB
     Indication: Ankylosing spondylitis
     Dosage: CITRATE FREE
     Route: 058
  2. CLONAZEPAM [Suspect]
     Active Substance: CLONAZEPAM
     Indication: Product used for unknown indication
     Route: 048
     Dates: start: 2007

REACTIONS (11)
  - Drug dependence [Unknown]
  - Dysarthria [Unknown]
  - Gait inability [Unknown]
  - Fatigue [Recovering/Resolving]
  - Hypersomnia [Unknown]
  - Malaise [Unknown]
  - Memory impairment [Unknown]
  - Thinking abnormal [Unknown]
  - Tremor [Recovering/Resolving]
  - Anxiety [Recovering/Resolving]
  - Drug ineffective [Unknown]
